FAERS Safety Report 7240268-X (Version None)
Quarter: 2011Q1

REPORT INFORMATION
  Report Type: 
  Country: None (occurrence: None)
  Receive Date: 20110120
  Receipt Date: 20110120
  Transmission Date: 20110831
  Serious: Yes (Hospitalization, Other)
  Sender: FDA-Public Use
  Company Number: None

PATIENT
  Sex: Male
  Weight: 98.8842 kg

DRUGS (1)
  1. DARVOCET [Suspect]
     Indication: BACK PAIN
     Dosage: 1 4X DAY ORALLY
     Route: 048
     Dates: start: 19980101, end: 20100101

REACTIONS (4)
  - DIZZINESS [None]
  - BALANCE DISORDER [None]
  - RENAL IMPAIRMENT [None]
  - FALL [None]
